FAERS Safety Report 6902870-1 (Version None)
Quarter: 2010Q3

REPORT INFORMATION
  Report Type: 
  Country: None (occurrence: None)
  Receive Date: 20100803
  Receipt Date: 20080623
  Transmission Date: 20110219
  Serious: No
  Sender: FDA-Public Use
  Company Number: US-PFIZER INC-2008046911

PATIENT
  Sex: Female

DRUGS (4)
  1. LYRICA [Suspect]
     Indication: GENERALISED ANXIETY DISORDER
     Route: 048
     Dates: start: 20080301, end: 20080617
  2. CYMBALTA [Concomitant]
  3. LORAZEPAM [Concomitant]
  4. LUNESTA [Concomitant]

REACTIONS (1)
  - RASH [None]
